FAERS Safety Report 8604945-8 (Version None)
Quarter: 2012Q3

REPORT INFORMATION
  Report Type: 
  Country: None (occurrence: None)
  Receive Date: 20120820
  Receipt Date: 20120817
  Transmission Date: 20120928
  Serious: Yes (Death)
  Sender: FDA-Public Use
  Company Number: MX-PFIZER INC-2012202172

PATIENT
  Age: 83 Year
  Sex: Female
  Weight: 150 kg

DRUGS (4)
  1. IRON [Concomitant]
     Indication: ANAEMIA
     Dosage: UNK
     Dates: end: 20120720
  2. OMEPRAZOLE [Concomitant]
     Indication: GASTRITIS
     Dosage: UNK
     Dates: end: 20120720
  3. CELEBREX [Suspect]
     Indication: RHEUMATOID ARTHRITIS
     Dosage: 200 MG, 1X/DAY
     Route: 048
     Dates: start: 20120101, end: 20120720
  4. CELEBREX [Suspect]
     Indication: INFLAMMATION

REACTIONS (2)
  - GASTRIC DISORDER [None]
  - RENAL FAILURE [None]
